FAERS Safety Report 7091712-2 (Version None)
Quarter: 2010Q4

REPORT INFORMATION
  Report Type: 
  Country: None (occurrence: None)
  Receive Date: 20101109
  Receipt Date: 20090724
  Transmission Date: 20110411
  Serious: No
  Sender: FDA-Public Use
  Company Number: US-KINGPHARMUSA00001-K200900884

PATIENT
  Age: 66 Year
  Sex: Female
  Weight: 101.59 kg

DRUGS (4)
  1. FLECTOR [Suspect]
     Indication: PAIN
     Dosage: 1 PATCH, BID
     Route: 061
     Dates: start: 20090101
  2. ASPIRIN [Concomitant]
     Indication: ARTHRITIS
     Dosage: UNK
  3. TYLENOL [Concomitant]
     Indication: ARTHRITIS
     Dosage: UNK
  4. MELOXICAM [Concomitant]
     Indication: ARTHRALGIA
     Dosage: 7.5 MG, QD
     Route: 048

REACTIONS (2)
  - MUSCLE SPASMS [None]
  - PAIN IN EXTREMITY [None]
